FAERS Safety Report 24157922 (Version 2)
Quarter: 2024Q3

REPORT INFORMATION
  Report Type: Spontaneous
  Country: US (occurrence: US)
  Receive Date: 20240731
  Receipt Date: 20240829
  Transmission Date: 20241017
  Serious: Yes (Other)
  Sender: GLAXOSMITHKLINE
  Company Number: US-GLAXOSMITHKLINE-US2024AMR093316

PATIENT

DRUGS (5)
  1. BUPROPION [Suspect]
     Active Substance: BUPROPION
     Indication: Depression
     Dosage: 4 DF, QID
     Route: 048
     Dates: start: 2020
  2. DESVENLAFAXINE [Suspect]
     Active Substance: DESVENLAFAXINE
     Indication: Adjustment disorder with depressed mood
     Dosage: 50 MG, QD
     Route: 048
     Dates: start: 20240618
  3. LEXAPRO [Suspect]
     Active Substance: ESCITALOPRAM OXALATE
     Indication: Adjustment disorder with depressed mood
     Dosage: 5 MG, QD
     Route: 048
     Dates: start: 20240618, end: 20240702
  4. PRISTIQ EXTENDED-RELEASE [Suspect]
     Active Substance: DESVENLAFAXINE SUCCINATE
     Indication: Adjustment disorder with depressed mood
     Dosage: 50 MG (EXTENDED RELEASE)
     Route: 048
     Dates: start: 202406
  5. PRISTIQ EXTENDED-RELEASE [Suspect]
     Active Substance: DESVENLAFAXINE SUCCINATE
     Indication: Depression

REACTIONS (4)
  - Crohn^s disease [Unknown]
  - Dyspepsia [Not Recovered/Not Resolved]
  - Gastrointestinal disorder [Unknown]
  - Drug ineffective [Unknown]
